FAERS Safety Report 19728123 (Version 3)
Quarter: 2021Q4

REPORT INFORMATION
  Report Type: Report from Study
  Country: JP (occurrence: JP)
  Receive Date: 20210820
  Receipt Date: 20211026
  Transmission Date: 20220303
  Serious: Yes (Other)
  Sender: FDA-Public Use
  Company Number: JP-MYLANLABS-2017M1079796

PATIENT
  Sex: Female

DRUGS (33)
  1. CYSTEAMINE [Suspect]
     Active Substance: CYSTEAMINE
     Indication: Cystinosis
     Dosage: 100 MG, QID
     Route: 048
     Dates: start: 20170605, end: 20170703
  2. CYSTEAMINE [Suspect]
     Active Substance: CYSTEAMINE
     Dosage: 200 MG, QID
     Route: 048
     Dates: start: 20170703, end: 20170807
  3. CYSTEAMINE [Suspect]
     Active Substance: CYSTEAMINE
     Dosage: 300 MG, QID
     Route: 048
     Dates: start: 20170807, end: 20170904
  4. CYSTEAMINE [Suspect]
     Active Substance: CYSTEAMINE
     Dosage: 200 MG, QID
     Route: 048
     Dates: start: 20170904, end: 20180930
  5. CYSTEAMINE [Suspect]
     Active Substance: CYSTEAMINE
     Dosage: 100 MILLIGRAM, TID
     Route: 048
     Dates: start: 20181001, end: 20191208
  6. CYSTEAMINE [Suspect]
     Active Substance: CYSTEAMINE
     Dosage: 50 MILLIGRAM, QD
     Route: 048
     Dates: start: 20181001, end: 20191208
  7. CYSTEAMINE [Suspect]
     Active Substance: CYSTEAMINE
     Dosage: 150 MILLIGRAM, TID
     Route: 048
     Dates: start: 20191209
  8. TACROLIMUS [Concomitant]
     Active Substance: TACROLIMUS
     Indication: Product used for unknown indication
     Dosage: 2 MG, QD
     Route: 048
     Dates: start: 20110310, end: 20180208
  9. TACROLIMUS [Concomitant]
     Active Substance: TACROLIMUS
     Dosage: 1.5 MG, QD
     Route: 048
     Dates: start: 20180209
  10. CELLCEPT [Concomitant]
     Active Substance: MYCOPHENOLATE MOFETIL\MYCOPHENOLATE MOFETIL HYDROCHLORIDE
     Indication: Product used for unknown indication
     Dosage: 750 MG, QD
     Route: 048
     Dates: start: 20130815, end: 20210608
  11. CELLCEPT [Concomitant]
     Active Substance: MYCOPHENOLATE MOFETIL\MYCOPHENOLATE MOFETIL HYDROCHLORIDE
     Dosage: 250 MILLIGRAM, QD
     Route: 048
     Dates: start: 20210608
  12. CERTICAN [Concomitant]
     Active Substance: EVEROLIMUS
     Indication: Product used for unknown indication
     Dosage: 2 MG, QD
     Route: 048
     Dates: start: 20140508
  13. MEDROL [Concomitant]
     Active Substance: METHYLPREDNISOLONE
     Indication: Product used for unknown indication
     Dosage: 4 MG, QD
     Route: 048
     Dates: start: 20110310
  14. LEVOTHYROXINE [Concomitant]
     Active Substance: LEVOTHYROXINE
     Indication: Product used for unknown indication
     Dosage: 75 ?G, QD
     Route: 048
     Dates: start: 20110426, end: 20170903
  15. LEVOTHYROXINE [Concomitant]
     Active Substance: LEVOTHYROXINE
     Dosage: 62.5 ?G, QD
     Route: 048
     Dates: start: 20170904
  16. DIPYRIDAMOLE [Concomitant]
     Active Substance: DIPYRIDAMOLE
     Indication: Product used for unknown indication
     Dosage: 300 MG, QD
     Route: 048
     Dates: start: 20140421
  17. NEXIUM [Concomitant]
     Active Substance: ESOMEPRAZOLE MAGNESIUM
     Indication: Product used for unknown indication
     Dosage: 200 MG, QD
     Route: 048
     Dates: start: 20141204, end: 20190519
  18. FEBUXOSTAT [Concomitant]
     Active Substance: FEBUXOSTAT
     Indication: Product used for unknown indication
     Dosage: 10 MG, QD
     Route: 048
     Dates: start: 20140516
  19. LIPITOR [Concomitant]
     Active Substance: ATORVASTATIN CALCIUM
     Indication: Product used for unknown indication
     Dosage: 5 MG, QD
     Route: 048
     Dates: start: 20140521
  20. SENNA LEAF [Concomitant]
     Active Substance: SENNA LEAF
     Indication: Product used for unknown indication
     Dosage: 48 MG, QD
     Route: 048
     Dates: start: 20140717
  21. VOGLIBOSE [Concomitant]
     Active Substance: VOGLIBOSE
     Indication: Product used for unknown indication
     Dosage: 0.4 MG, QD
     Route: 048
     Dates: start: 20140820
  22. MIYA-BM [Concomitant]
     Active Substance: CLOSTRIDIUM BUTYRICUM SPORES STRAIN M-55
     Indication: Product used for unknown indication
     Dosage: 60 MG, QD
     Route: 048
     Dates: start: 20170703, end: 20170903
  23. DIMETHICONE [Concomitant]
     Active Substance: DIMETHICONE
     Indication: Product used for unknown indication
     Dosage: 120 MG, QD
     Route: 048
     Dates: start: 20170703, end: 20170903
  24. SODIUM PICOSULFATE [Concomitant]
     Active Substance: SODIUM PICOSULFATE
     Indication: Product used for unknown indication
     Dosage: 15 TO 20 DROPS, DURING CONSTIPATION
     Route: 048
     Dates: start: 20150625
  25. ONEALFA [Concomitant]
     Active Substance: ALFACALCIDOL
     Indication: Product used for unknown indication
     Dosage: 0.25 ?G, QD
     Route: 048
     Dates: start: 20171113, end: 20180318
  26. ONEALFA [Concomitant]
     Active Substance: ALFACALCIDOL
     Dosage: 0.5 ?G, QD
     Route: 048
     Dates: start: 20180319, end: 20191003
  27. ONEALFA [Concomitant]
     Active Substance: ALFACALCIDOL
     Dosage: 0.5 ?G, QD
     Route: 048
     Dates: start: 20191004
  28. VONOPRAZAN FUMARATE [Concomitant]
     Active Substance: VONOPRAZAN FUMARATE
     Indication: Product used for unknown indication
     Dosage: 10 MILLIGRAM, QD
     Route: 048
     Dates: start: 20190520
  29. AZITHROMYCIN ANHYDROUS [Concomitant]
     Active Substance: AZITHROMYCIN ANHYDROUS
     Indication: Product used for unknown indication
     Dosage: 500 MILLIGRAM, QD
     Route: 048
     Dates: start: 20200422, end: 20200424
  30. ZETIA [Concomitant]
     Active Substance: EZETIMIBE
     Indication: Product used for unknown indication
     Dosage: 10 MILLIGRAM, QD
     Route: 048
     Dates: start: 20200410
  31. ROZEREM [Concomitant]
     Active Substance: RAMELTEON
     Indication: Product used for unknown indication
     Dosage: 8 MILLIGRAM, QD
     Route: 048
     Dates: start: 20200717
  32. LEVOFLOXACIN [Concomitant]
     Active Substance: LEVOFLOXACIN
     Indication: Product used for unknown indication
     Dosage: 250 MILLIGRAM, QD
     Route: 048
     Dates: start: 20210205, end: 20210211
  33. SULFAMETHOXAZOLE\TRIMETHOPRIM [Concomitant]
     Active Substance: SULFAMETHOXAZOLE\TRIMETHOPRIM
     Indication: Product used for unknown indication
     Dosage: 1 DOSAGE FORM, QD
     Route: 048
     Dates: start: 20210205

REACTIONS (7)
  - Ascites [Not Recovered/Not Resolved]
  - Abdominal distension [Recovered/Resolved]
  - Nausea [Recovering/Resolving]
  - Decreased appetite [Recovering/Resolving]
  - Bronchitis [Recovering/Resolving]
  - Herpes zoster [Recovering/Resolving]
  - Constipation [Not Recovered/Not Resolved]

NARRATIVE: CASE EVENT DATE: 20170904
